FAERS Safety Report 9637059 (Version 2)
Quarter: 2013Q4

REPORT INFORMATION
  Report Type: Spontaneous
  Country: US (occurrence: US)
  Receive Date: 20131022
  Receipt Date: 20131025
  Transmission Date: 20140711
  Serious: No
  Sender: FDA-Public Use
  Company Number: US-009507513-1310USA008833

PATIENT
  Age: 24 Year
  Sex: Female
  Weight: 99.77 kg

DRUGS (2)
  1. NEXPLANON [Suspect]
     Indication: CONTRACEPTION
     Dosage: EVERY 3 YEARS 1 ROD
     Route: 059
     Dates: start: 20130708
  2. TOPAMAX [Concomitant]

REACTIONS (1)
  - Device kink [Unknown]
